FAERS Safety Report 4835070-X (Version None)
Quarter: 2005Q4

REPORT INFORMATION
  Report Type: 
  Country: None (occurrence: None)
  Receive Date: 20051122
  Receipt Date: 20051114
  Transmission Date: 20060501
  Serious: Yes (Hospitalization)
  Sender: FDA-Public Use
  Company Number: ES-ABBOTT-05P-144-0317683-00

PATIENT
  Age: 87 Year
  Sex: Female
  Weight: 61 kg

DRUGS (3)
  1. CLARITHROMYCIN [Suspect]
     Indication: DRUG USE FOR UNKNOWN INDICATION
     Route: 048
  2. DIGOXIN [Interacting]
     Indication: DRUG USE FOR UNKNOWN INDICATION
     Route: 048
  3. VERAPAMIL [Concomitant]
     Indication: DRUG USE FOR UNKNOWN INDICATION

REACTIONS (4)
  - DRUG INTERACTION [None]
  - GENERAL PHYSICAL HEALTH DETERIORATION [None]
  - HYPOTENSION [None]
  - THERAPEUTIC AGENT TOXICITY [None]
